FAERS Safety Report 5482564-2 (Version None)
Quarter: 2007Q4

REPORT INFORMATION
  Report Type: 
  Country: None (occurrence: None)
  Receive Date: 20071011
  Receipt Date: 20070725
  Transmission Date: 20080405
  Serious: No
  Sender: FDA-Public Use
  Company Number: A0662818A

PATIENT
  Age: 60 Year
  Sex: Female

DRUGS (6)
  1. TYKERB [Suspect]
     Indication: BREAST CANCER
     Dosage: 1250MG THREE TIMES PER DAY
     Route: 048
     Dates: start: 20070601, end: 20070601
  2. TAXOL [Concomitant]
  3. KEPPRA [Concomitant]
  4. PEPCID [Concomitant]
  5. ATIVAN [Concomitant]
  6. COUMADIN [Concomitant]

REACTIONS (3)
  - ANOREXIA [None]
  - DIARRHOEA [None]
  - RASH [None]
